FAERS Safety Report 6213674-X (Version None)
Quarter: 2009Q2

REPORT INFORMATION
  Report Type: 
  Country: None (occurrence: None)
  Receive Date: 20090603
  Receipt Date: 20090527
  Transmission Date: 20091009
  Serious: Yes (Hospitalization)
  Sender: FDA-Public Use
  Company Number: CH-WATSON-2009-03830

PATIENT
  Age: 41 Year
  Sex: Male

DRUGS (1)
  1. CHLOROQUINE (WATSON LABORATORIES) [Suspect]
     Indication: CUTANEOUS LUPUS ERYTHEMATOSUS
     Dosage: 300 MG, DAILY
     Route: 048

REACTIONS (2)
  - ACUTE RESPIRATORY FAILURE [None]
  - PNEUMONITIS [None]
